FAERS Safety Report 23926217 (Version 1)
Quarter: 2024Q2

REPORT INFORMATION
  Report Type: Spontaneous
  Country: US (occurrence: None)
  Receive Date: 20240531
  Receipt Date: 20240531
  Transmission Date: 20240716
  Serious: Yes (Other)
  Sender: FDA-Public Use
  Company Number: 2024A122184

PATIENT
  Sex: Female

DRUGS (1)
  1. FASENRA [Suspect]
     Active Substance: BENRALIZUMAB
     Indication: Asthma
     Route: 058
     Dates: start: 20240417

REACTIONS (5)
  - Pneumonitis [Unknown]
  - Dysphonia [Unknown]
  - Feeling abnormal [Unknown]
  - Chest discomfort [Unknown]
  - Upper-airway cough syndrome [Unknown]
